FAERS Safety Report 6147064-5 (Version None)
Quarter: 2009Q2

REPORT INFORMATION
  Report Type: 
  Country: None (occurrence: None)
  Receive Date: 20090403
  Receipt Date: 20090326
  Transmission Date: 20091009
  Serious: Yes (Hospitalization)
  Sender: FDA-Public Use
  Company Number: 2009JP001504

PATIENT
  Age: 83 Year
  Sex: Male
  Weight: 54.6 kg

DRUGS (12)
  1. SOLIFENACIN BLINDED(CODE NOT BROKEN) TABLET, UNKNOWN [Suspect]
     Indication: HYPERTONIC BLADDER
     Dosage: 2 DF, UID/QD, ORAL
     Route: 048
     Dates: start: 20090116, end: 20090222
  2. TAMSULOSIN HCL [Suspect]
     Indication: BENIGN PROSTATIC HYPERPLASIA
     Dosage: 0.2 MG, UID/QD, ORAL
     Route: 048
     Dates: start: 20081107, end: 20090222
  3. KYOBERIN(BERBERINE HYDROCHLORIDE) CAPSULE [Suspect]
     Indication: DIARRHOEA
     Dosage: 1 DF, TID, ORAL
     Route: 048
     Dates: start: 20090212, end: 20090222
  4. RIZE (CLOTIAZEPAM) TABLET [Concomitant]
  5. LANIRAPID (METILDIGOXIN) TABLET [Concomitant]
  6. WARFARIN SODIUM [Concomitant]
  7. TENORMIN [Concomitant]
  8. PRORENAL (LIMAPROST) TABLET [Concomitant]
  9. METHYCOBAL (MECOBALAMIN) TABLET [Concomitant]
  10. KARY UNI (PIRENOXINE) EYE DROP, 0.005 % [Concomitant]
  11. MAGLAX (MAGNESIUM OXIDE) PER ORAL NOS [Concomitant]
  12. BIOFERMIN (STREPTOCOCCUS FAECALIS, BACILLUS SUBTILIS, LACTOBACILLUS AC [Concomitant]

REACTIONS (4)
  - DIARRHOEA [None]
  - INTERSTITIAL LUNG DISEASE [None]
  - LYMPHOCYTE STIMULATION TEST POSITIVE [None]
  - RESPIRATORY FAILURE [None]
